FAERS Safety Report 15413753 (Version 2)
Quarter: 2018Q3

REPORT INFORMATION
  Report Type: Spontaneous
  Country: FR (occurrence: FR)
  Receive Date: 20180921
  Receipt Date: 20180927
  Transmission Date: 20181010
  Serious: Yes (Hospitalization)
  Sender: FDA-Public Use
  Company Number: PHHY2018FR101632

PATIENT
  Age: 56 Year
  Sex: Female

DRUGS (1)
  1. MAXIDEX [Suspect]
     Active Substance: DEXAMETHASONE
     Indication: CHALAZION
     Dosage: UNK UNK, QD DURING 9 DAYS
     Route: 047

REACTIONS (5)
  - Pupillary disorder [Recovered/Resolved]
  - Eye pain [Recovered/Resolved]
  - Dry eye [Unknown]
  - Eyelid ptosis [Not Recovered/Not Resolved]
  - Photophobia [Recovering/Resolving]

NARRATIVE: CASE EVENT DATE: 201809
